FAERS Safety Report 17803116 (Version 1)
Quarter: 2020Q2

REPORT INFORMATION
  Report Type: Spontaneous
  Country: HR (occurrence: HR)
  Receive Date: 20200519
  Receipt Date: 20200519
  Transmission Date: 20200714
  Serious: Yes (Other)
  Sender: FDA-Public Use
  Company Number: HR-ACCORD-182499

PATIENT
  Sex: Female

DRUGS (6)
  1. NORMABEL [Suspect]
     Active Substance: DIAZEPAM
     Indication: PRODUCT USED FOR UNKNOWN INDICATION
     Dosage: INTENTIONAL OVERDOSE, CONSUME A BOX OF NORMABEL 5 MG, STRENGTH: 5 MG
     Route: 048
     Dates: start: 20200425, end: 20200425
  2. ALCOHOL. [Suspect]
     Active Substance: ALCOHOL
     Indication: PRODUCT USED FOR UNKNOWN INDICATION
     Dosage: INTENTIONAL OVERDOSE, SHE DRANK 1 L OF BRANDY
     Route: 048
     Dates: start: 20200425, end: 20200425
  3. DORETA [Suspect]
     Active Substance: ACETAMINOPHEN\TRAMADOL HYDROCHLORIDE
     Indication: PRODUCT USED FOR UNKNOWN INDICATION
     Dosage: INTENTIONAL OVERDOSE, DOSE: 1, 2 BLISTERS DORETA
     Route: 048
     Dates: start: 20200425, end: 20200425
  4. PRAXITEN [Suspect]
     Active Substance: OXAZEPAM
     Indication: PRODUCT USED FOR UNKNOWN INDICATION
     Dosage: PRAXITEN 15, INTENTIONAL OVERDOSE, DOSE: 1,SHE TOOK AN UNKNOWN AMOUNT
     Route: 048
     Dates: start: 20200425, end: 20200425
  5. KETONAL (KETOPROFEN) [Suspect]
     Active Substance: KETOPROFEN
     Indication: PRODUCT USED FOR UNKNOWN INDICATION
     Dosage: INTENTIONAL OVERDOSE, 2 G
     Route: 048
     Dates: start: 20200425, end: 20200425
  6. ALLOPURINOL. [Suspect]
     Active Substance: ALLOPURINOL
     Indication: PRODUCT USED FOR UNKNOWN INDICATION
     Dosage: INTENTIONAL OVERDOSE, DOSE: 1, 1 BLISTER OF ALLOPURINOL
     Route: 048
     Dates: start: 20200425, end: 20200425

REACTIONS (3)
  - Intentional overdose [Unknown]
  - Somnolence [Unknown]
  - Suicide attempt [Unknown]

NARRATIVE: CASE EVENT DATE: 20200425
